FAERS Safety Report 5008161-0 (Version None)
Quarter: 2006Q2

REPORT INFORMATION
  Report Type: 
  Country: None (occurrence: None)
  Receive Date: 20060404
  Receipt Date: 20051012
  Transmission Date: 20061013
  Serious: Yes (Other)
  Sender: FDA-Public Use
  Company Number: 2005141883

PATIENT
  Sex: Female

DRUGS (1)
  1. GEODON [Suspect]
     Dosage: 160 MG (80 MG, 2 IN 1 D),
     Dates: start: 20050719

REACTIONS (1)
  - ELECTROCARDIOGRAM QT PROLONGED [None]
